FAERS Safety Report 25155136 (Version 1)
Quarter: 2025Q2

REPORT INFORMATION
  Report Type: Spontaneous
  Country: AU (occurrence: AU)
  Receive Date: 20250403
  Receipt Date: 20250403
  Transmission Date: 20250716
  Serious: Yes (Other)
  Sender: Kenvue
  Company Number: None

PATIENT

DRUGS (13)
  1. BUDESONIDE [Suspect]
     Active Substance: BUDESONIDE
     Indication: Product used for unknown indication
     Route: 065
     Dates: start: 2020
  2. ENTYVIO [Suspect]
     Active Substance: VEDOLIZUMAB
     Indication: Crohn^s disease
     Dosage: UNK UNK, ONCE IN A MONTH
     Route: 065
     Dates: start: 202207
  3. ENTYVIO [Suspect]
     Active Substance: VEDOLIZUMAB
     Dosage: UNK UNK, ONCE IN A MONTH
     Route: 065
     Dates: start: 202211
  4. ADALIMUMAB [Suspect]
     Active Substance: ADALIMUMAB
     Indication: Product used for unknown indication
     Route: 065
     Dates: start: 2018, end: 2018
  5. AZATHIOPRINE [Suspect]
     Active Substance: AZATHIOPRINE
     Indication: Product used for unknown indication
     Route: 065
  6. MESALAMINE [Suspect]
     Active Substance: MESALAMINE
     Indication: Product used for unknown indication
     Route: 065
  7. PREDNISOLONE [Suspect]
     Active Substance: PREDNISOLONE
     Indication: Product used for unknown indication
     Route: 048
     Dates: start: 2020
  8. UPADACITINIB HEMIHYDRATE [Suspect]
     Active Substance: UPADACITINIB HEMIHYDRATE
     Indication: Crohn^s disease
     Dosage: 45 MILLIGRAM, ONCE A DAY
     Route: 065
     Dates: start: 202102
  9. UPADACITINIB HEMIHYDRATE [Suspect]
     Active Substance: UPADACITINIB HEMIHYDRATE
     Route: 065
     Dates: start: 202211
  10. UPADACITINIB HEMIHYDRATE [Suspect]
     Active Substance: UPADACITINIB HEMIHYDRATE
     Dosage: 30 MILLIGRAM, ONCE A DAY
     Route: 065
     Dates: start: 202211
  11. UPADACITINIB HEMIHYDRATE [Suspect]
     Active Substance: UPADACITINIB HEMIHYDRATE
     Dosage: 45 MILLIGRAM, ONCE A DAY
     Route: 065
     Dates: start: 202211
  12. UPADACITINIB HEMIHYDRATE [Suspect]
     Active Substance: UPADACITINIB HEMIHYDRATE
     Dosage: 30 MILLIGRAM, ONCE A DAY
     Route: 065
  13. USTEKINUMAB [Suspect]
     Active Substance: USTEKINUMAB
     Indication: Product used for unknown indication
     Route: 065
     Dates: start: 2019, end: 2019

REACTIONS (8)
  - Crohn^s disease [Unknown]
  - Tubulointerstitial nephritis [Unknown]
  - Drug intolerance [Unknown]
  - Loss of therapeutic response [Unknown]
  - Off label use [Unknown]
  - Osteoporosis [Unknown]
  - Sinusitis [Unknown]
  - Spondyloarthropathy [Unknown]
